FAERS Safety Report 22160424 (Version 1)
Quarter: 2023Q1

REPORT INFORMATION
  Report Type: Spontaneous
  Country: US (occurrence: None)
  Receive Date: 20230330
  Receipt Date: 20230330
  Transmission Date: 20230418
  Serious: Yes (Other)
  Sender: FDA-Public Use
  Company Number: None

PATIENT
  Age: 83 Year
  Sex: Female

DRUGS (19)
  1. AMBRISENTAN [Suspect]
     Active Substance: AMBRISENTAN
     Indication: Pulmonary arterial hypertension
     Dosage: FREQUENCY : DAILY;?
     Route: 048
     Dates: start: 20201202
  2. SILDENAFIL [Suspect]
     Active Substance: SILDENAFIL
  3. SILDENAFIL [Concomitant]
     Active Substance: SILDENAFIL
  4. METOLAZONE [Concomitant]
     Active Substance: METOLAZONE
  5. FUROSEMIDE [Concomitant]
     Active Substance: FUROSEMIDE
  6. APIXABAN [Concomitant]
     Active Substance: APIXABAN
  7. METOPROLOL [Concomitant]
     Active Substance: METOPROLOL
  8. K-TAB [Concomitant]
     Active Substance: POTASSIUM CHLORIDE
  9. AZELAIC ACID [Concomitant]
     Active Substance: AZELAIC ACID
  10. PANTOPRAZOLE [Concomitant]
     Active Substance: PANTOPRAZOLE
  11. CALCITRIOL [Concomitant]
     Active Substance: CALCITRIOL
  12. ATORVASTATIN [Concomitant]
     Active Substance: ATORVASTATIN
  13. PANTOPRAZOLE [Concomitant]
     Active Substance: PANTOPRAZOLE
  14. MIRTAZAPINE [Concomitant]
     Active Substance: MIRTAZAPINE
  15. CETIRIZINE [Concomitant]
     Active Substance: CETIRIZINE HYDROCHLORIDE
  16. VICTRON-C [Concomitant]
  17. CALCIUM CARB W/ VIT D [Concomitant]
  18. TRIMAINCOLONE TOP OINT [Concomitant]
  19. MUPIROCIN TOP OINT [Concomitant]

REACTIONS (1)
  - Food poisoning [None]

NARRATIVE: CASE EVENT DATE: 20230302
